FAERS Safety Report 9851625 (Version 2)
Quarter: 2014Q1

REPORT INFORMATION
  Report Type: Spontaneous
  Country: US (occurrence: US)
  Receive Date: 20140129
  Receipt Date: 20140325
  Transmission Date: 20141002
  Serious: No
  Sender: FDA-Public Use
  Company Number: US-BIOGENIDEC-2014BI007240

PATIENT
  Age: 55 Year
  Sex: Female

DRUGS (14)
  1. TECFIDERA [Suspect]
     Indication: MULTIPLE SCLEROSIS
     Route: 048
     Dates: start: 20140108
  2. TECFIDERA [Suspect]
     Indication: MULTIPLE SCLEROSIS
     Route: 048
     Dates: start: 20140110
  3. XANAX [Concomitant]
  4. COLESTID [Concomitant]
  5. BACLOFEN [Concomitant]
  6. TENORMIN [Concomitant]
  7. MEDROXYPROGESTERONE [Concomitant]
  8. VALIUM [Concomitant]
  9. OMEGA 3 FISH OIL [Concomitant]
  10. PRESERVISION [Concomitant]
  11. TESTOSTERONE/ESTRADIOL [Concomitant]
     Route: 061
  12. CITRACAL + D [Concomitant]
  13. MELATONIN [Concomitant]
  14. ESTROGEN-METHYLTESTOS FS [Concomitant]

REACTIONS (3)
  - Somnolence [Unknown]
  - Flushing [Not Recovered/Not Resolved]
  - Dyspepsia [Recovered/Resolved]
